FAERS Safety Report 14123823 (Version 1)
Quarter: 2017Q4

REPORT INFORMATION
  Report Type: Spontaneous
  Country: US (occurrence: US)
  Receive Date: 20171025
  Receipt Date: 20171025
  Transmission Date: 20180321
  Serious: No
  Sender: FDA-Public Use
  Company Number: US-009507513-1709USA012522

PATIENT

DRUGS (1)
  1. NEXPLANON [Suspect]
     Active Substance: ETONOGESTREL
     Dosage: 68MG / THREE YEARS
     Route: 059

REACTIONS (3)
  - Product packaging issue [Unknown]
  - Product container issue [Unknown]
  - No adverse event [Unknown]
